FAERS Safety Report 24647029 (Version 1)
Quarter: 2024Q4

REPORT INFORMATION
  Report Type: Spontaneous
  Country: FR (occurrence: FR)
  Receive Date: 20241121
  Receipt Date: 20241121
  Transmission Date: 20250114
  Serious: Yes (Life-Threatening)
  Sender: NOVARTIS
  Company Number: None

PATIENT
  Age: 50 Year
  Sex: Male
  Weight: 73 kg

DRUGS (8)
  1. TERBINAFINE [Interacting]
     Active Substance: TERBINAFINE\TERBINAFINE HYDROCHLORIDE
     Indication: Dermatophytosis of nail
     Dosage: 250 MG, QD
     Route: 048
     Dates: start: 202409, end: 20241001
  2. SUTENT [Interacting]
     Active Substance: SUNITINIB MALATE
     Indication: Gastrointestinal stromal tumour
     Dosage: 1 DOSAGE FORM, QD ( 50 MG, G?LULE)
     Route: 048
     Dates: start: 20240926
  3. AUGMENTIN [Interacting]
     Active Substance: AMOXICILLIN\CLAVULANATE POTASSIUM
     Indication: Antibiotic therapy
     Dosage: 3 G, QD
     Route: 048
     Dates: start: 20240927, end: 20241001
  4. ACUPAN [Interacting]
     Active Substance: NEFOPAM HYDROCHLORIDE
     Indication: Pain
     Dosage: 4 DOSAGE FORM, QD
     Route: 048
     Dates: start: 20240912, end: 20241001
  5. WARFARIN SODIUM [Interacting]
     Active Substance: WARFARIN SODIUM
     Indication: Anticoagulant therapy
     Dosage: 9 MG, QD
     Route: 048
     Dates: start: 202407, end: 20241001
  6. ACETAMINOPHEN [Concomitant]
     Active Substance: ACETAMINOPHEN
     Indication: Product used for unknown indication
     Dosage: 3 G
     Route: 048
     Dates: start: 20240911
  7. MORPHINE SULFATE [Concomitant]
     Active Substance: MORPHINE SULFATE
     Indication: Product used for unknown indication
     Dosage: 6 DOSAGE FORM, 5 MG, G?LULE
     Route: 048
     Dates: start: 202409
  8. FENTANYL [Concomitant]
     Active Substance: FENTANYL
     Indication: Product used for unknown indication
     Dosage: 1 DOSAGE FORM, Q72H (25 MICROGRAMMES/HEURE (4,2 MG/10,5 CM?), DISPOSITIF TRANSDERMIQUE)
     Route: 062
     Dates: start: 202409, end: 20241001

REACTIONS (3)
  - International normalised ratio increased [Recovered/Resolved]
  - Tumour haemorrhage [Recovered/Resolved]
  - Drug interaction [Recovered/Resolved]

NARRATIVE: CASE EVENT DATE: 20240926
